FAERS Safety Report 10427813 (Version 1)
Quarter: 2014Q3

REPORT INFORMATION
  Report Type: Spontaneous
  Country: US (occurrence: None)
  Receive Date: 20140902
  Receipt Date: 20140902
  Transmission Date: 20150326
  Serious: Yes (Other)
  Sender: FDA-Public Use
  Company Number: None

PATIENT
  Age: 48 Year
  Sex: Female
  Weight: 102.06 kg

DRUGS (1)
  1. BYDUREON [Suspect]
     Active Substance: EXENATIDE
     Indication: TYPE 2 DIABETES MELLITUS
     Route: 058
     Dates: start: 20140822, end: 20140829

REACTIONS (7)
  - Dysphagia [None]
  - Choking [None]
  - Dry throat [None]
  - Oropharyngeal pain [None]
  - Urinary incontinence [None]
  - Thirst [None]
  - Dry mouth [None]
